FAERS Safety Report 24234786 (Version 1)
Quarter: 2024Q3

REPORT INFORMATION
  Report Type: Spontaneous
  Country: US (occurrence: None)
  Receive Date: 20240820
  Receipt Date: 20240820
  Transmission Date: 20241017
  Serious: Yes (Hospitalization)
  Sender: Public
  Company Number: None

PATIENT
  Age: 77 Year
  Sex: Male

DRUGS (2)
  1. NUPLAZID [Suspect]
     Active Substance: PIMAVANSERIN TARTRATE
     Indication: Parkinson^s disease psychosis
     Dosage: FREQUENCY : DAILY;?
     Route: 048
     Dates: start: 20230809
  2. OZEMPIC [Suspect]
     Active Substance: SEMAGLUTIDE

REACTIONS (1)
  - Impaired gastric emptying [None]

NARRATIVE: CASE EVENT DATE: 20240815
